FAERS Safety Report 9798995 (Version 1)
Quarter: 2014Q1

REPORT INFORMATION
  Report Type: Spontaneous
  Country: US (occurrence: US)
  Receive Date: 20140106
  Receipt Date: 20140106
  Transmission Date: 20141002
  Serious: No
  Sender: FDA-Public Use
  Company Number: US-GILEAD-2010-0032326

PATIENT
  Age: 76 Year
  Sex: Female
  Weight: 88.45 kg

DRUGS (9)
  1. LETAIRIS [Suspect]
     Indication: PULMONARY ARTERIAL HYPERTENSION
     Route: 048
     Dates: start: 20090309
  2. AMIODARONE [Concomitant]
  3. ALTACE [Concomitant]
  4. PLAVIX [Concomitant]
  5. PRAVASTATIN SOD [Concomitant]
  6. FUROSEMIDE [Concomitant]
  7. OMEPRAZOLE [Concomitant]
  8. ECOTRIN [Concomitant]
  9. PRESERVISION [Concomitant]

REACTIONS (1)
  - Dyspnoea [Unknown]
